FAERS Safety Report 25478134 (Version 1)
Quarter: 2025Q2

REPORT INFORMATION
  Report Type: Spontaneous
  Country: FR (occurrence: FR)
  Receive Date: 20250625
  Receipt Date: 20250625
  Transmission Date: 20250717
  Serious: Yes (Other)
  Sender: REGENERON
  Company Number: FR-BAYER-2025A083090

PATIENT
  Age: 69 Year
  Sex: Male

DRUGS (2)
  1. EYLEA HD [Suspect]
     Active Substance: AFLIBERCEPT
     Indication: Product used for unknown indication
     Dates: start: 20250401, end: 20250401
  2. EYLEA HD [Suspect]
     Active Substance: AFLIBERCEPT
     Dates: start: 20250523, end: 20250523

REACTIONS (6)
  - Ocular hypertension [Unknown]
  - Punctate keratitis [Recovering/Resolving]
  - Keratitis [Unknown]
  - Anterior chamber flare [Recovering/Resolving]
  - Ocular hyperaemia [Unknown]
  - Anterior chamber flare [Unknown]

NARRATIVE: CASE EVENT DATE: 20250403
